FAERS Safety Report 7993695-7 (Version None)
Quarter: 2011Q4

REPORT INFORMATION
  Report Type: 
  Country: None (occurrence: None)
  Receive Date: 20111219
  Receipt Date: 20080304
  Transmission Date: 20120403
  Serious: Yes (Hospitalization)
  Sender: FDA-Public Use
  Company Number: PHHY2008VE043836

PATIENT
  Sex: Male

DRUGS (7)
  1. AMIODARONE HCL [Concomitant]
     Dosage: 200 MG, QD
  2. LIPITOR [Concomitant]
     Dosage: 10 MG, QD AT NIGHT
  3. PLAVIX [Concomitant]
     Dosage: 1 DF, QD
  4. ISMO [Concomitant]
     Dosage: 200 MG, QD
  5. VALSARTAN [Suspect]
     Dosage: 80 MG, QD IN THE MORNING.
  6. NITROMEX [Concomitant]
     Dosage: 200 MG, QD
  7. MAGNESIUM HYDROXIDE TAB [Concomitant]
     Dosage: 1 DF, QD

REACTIONS (1)
  - THROMBOSIS [None]
